FAERS Safety Report 25566898 (Version 2)
Quarter: 2025Q3

REPORT INFORMATION
  Report Type: Spontaneous
  Country: US (occurrence: US)
  Receive Date: 20250716
  Receipt Date: 20250725
  Transmission Date: 20251020
  Serious: No
  Sender: Karo Pharma
  Company Number: US-Karo Pharma-2180618

PATIENT
  Sex: Male

DRUGS (1)
  1. LAMISIL [Suspect]
     Active Substance: TERBINAFINE HYDROCHLORIDE
     Indication: Product used for unknown indication

REACTIONS (6)
  - Product use issue [Unknown]
  - Fatigue [Unknown]
  - Arthralgia [Unknown]
  - Appetite disorder [Unknown]
  - Asthenia [Unknown]
  - Balance disorder [Unknown]
